FAERS Safety Report 4980387-1 (Version None)
Quarter: 2006Q2

REPORT INFORMATION
  Report Type: 
  Country: None (occurrence: None)
  Receive Date: 20060424
  Receipt Date: 20060221
  Transmission Date: 20061013
  Serious: Yes (Death, Life-Threatening, Disabling)
  Sender: FDA-Public Use
  Company Number: JP-BRISTOL-MYERS SQUIBB COMPANY-13289285

PATIENT
  Age: 65 Year
  Sex: Male

DRUGS (7)
  1. TAXOL [Suspect]
     Indication: GASTRIC CANCER
     Route: 042
     Dates: start: 20060206, end: 20060206
  2. IMIPENEM [Suspect]
     Indication: FEBRILE NEUTROPENIA
     Route: 042
     Dates: start: 20060212, end: 20060212
  3. FENTANYL [Suspect]
     Indication: CANCER PAIN
     Dates: start: 20060217, end: 20060217
  4. MAXIPIME [Concomitant]
     Indication: FEBRILE NEUTROPENIA
     Route: 042
     Dates: start: 20060214, end: 20060217
  5. INSULIN HUMAN [Concomitant]
     Dates: start: 20060206, end: 20060214
  6. OXYCODONE HCL [Concomitant]
     Indication: CANCER PAIN
     Route: 048
     Dates: start: 20060208, end: 20060212
  7. SENNOSIDE A+B [Concomitant]
     Route: 048
     Dates: start: 20060210, end: 20060210

REACTIONS (5)
  - CONFUSIONAL STATE [None]
  - FEBRILE NEUTROPENIA [None]
  - HEPATIC FUNCTION ABNORMAL [None]
  - MALIGNANT NEOPLASM PROGRESSION [None]
  - RENAL FAILURE ACUTE [None]
